FAERS Safety Report 8446079-1 (Version None)
Quarter: 2012Q2

REPORT INFORMATION
  Report Type: 
  Country: None (occurrence: None)
  Receive Date: 20120618
  Receipt Date: 20120611
  Transmission Date: 20120825
  Serious: No
  Sender: FDA-Public Use
  Company Number: VE-PFIZER INC-2012134700

PATIENT
  Age: 75 Year
  Sex: Male

DRUGS (1)
  1. LIPITOR [Suspect]
     Dosage: 40 MG, UNK
     Route: 048
     Dates: start: 20120101

REACTIONS (1)
  - NO ADVERSE EVENT [None]
